FAERS Safety Report 20488142 (Version 1)
Quarter: 2022Q1

REPORT INFORMATION
  Report Type: Spontaneous
  Country: FR (occurrence: FR)
  Receive Date: 20220218
  Receipt Date: 20220218
  Transmission Date: 20220423
  Serious: Yes (Congenital Anomaly, Other)
  Sender: FDA-Public Use
  Company Number: FR-ABBVIE-22K-056-4282294-00

PATIENT
  Sex: Male
  Weight: 3.97 kg

DRUGS (2)
  1. VALPROATE SODIUM [Suspect]
     Active Substance: VALPROATE SODIUM
     Indication: Maternal exposure timing unspecified
     Route: 064
  2. LAMOTRIGINE [Suspect]
     Active Substance: LAMOTRIGINE
     Indication: Maternal exposure timing unspecified
     Route: 064

REACTIONS (22)
  - Sleep disorder [Unknown]
  - Strabismus [Unknown]
  - Language disorder [Unknown]
  - Emotional disorder of childhood [Unknown]
  - Social avoidant behaviour [Unknown]
  - Decreased eye contact [Unknown]
  - Aphasia [Unknown]
  - Disinhibition [Unknown]
  - Auditory disorder [Unknown]
  - Educational problem [Unknown]
  - Communication disorder [Unknown]
  - Affective disorder [Unknown]
  - Anger [Unknown]
  - Negativism [Unknown]
  - Food allergy [Unknown]
  - Eczema [Unknown]
  - Psychomotor skills impaired [Unknown]
  - Disturbance in attention [Unknown]
  - Psychomotor hyperactivity [Unknown]
  - Stereotypy [Unknown]
  - Autism spectrum disorder [Unknown]
  - Foetal exposure during pregnancy [Unknown]

NARRATIVE: CASE EVENT DATE: 20030101
